FAERS Safety Report 6212254-X (Version None)
Quarter: 2009Q2

REPORT INFORMATION
  Report Type: 
  Country: None (occurrence: None)
  Receive Date: 20090529
  Receipt Date: 20090521
  Transmission Date: 20091009
  Serious: Yes (Other)
  Sender: FDA-Public Use
  Company Number: 2008SP011729

PATIENT
  Age: 40 Year
  Sex: Female

DRUGS (13)
  1. ASMANEX TWISTHALER [Suspect]
     Indication: DRUG USE FOR UNKNOWN INDICATION
     Dosage: 1 DF; HS; INH
     Route: 055
  2. BACTROBAN [Concomitant]
  3. ASTELIN [Concomitant]
  4. PATANOL [Concomitant]
  5. SINGULAIR [Concomitant]
  6. ALBUTEROL [Concomitant]
  7. MULTI-VITAMINS [Concomitant]
  8. CLARINEX [Concomitant]
  9. PROVERA [Concomitant]
  10. GLUCOPHAGE [Concomitant]
  11. ASPIRIN [Concomitant]
  12. PRAVACHOL [Concomitant]
  13. PREVACID [Concomitant]

REACTIONS (4)
  - ENLARGED UVULA [None]
  - HAEMOPTYSIS [None]
  - OROPHARYNGEAL BLISTERING [None]
  - OROPHARYNGEAL PAIN [None]
